FAERS Safety Report 8590584-4 (Version None)
Quarter: 2012Q3

REPORT INFORMATION
  Report Type: 
  Country: None (occurrence: None)
  Receive Date: 20120813
  Receipt Date: 20120731
  Transmission Date: 20120928
  Serious: Yes (Other)
  Sender: FDA-Public Use
  Company Number: DE-EISAI INC-E7389-02847-SPO-DE

PATIENT
  Age: 67 Year
  Sex: Female

DRUGS (1)
  1. HALAVEN [Suspect]
     Route: 041
     Dates: start: 20111223

REACTIONS (3)
  - THROMBOSIS [None]
  - MUCOSAL INFLAMMATION [None]
  - ASCITES [None]
